FAERS Safety Report 14158046 (Version 1)
Quarter: 2017Q4

REPORT INFORMATION
  Report Type: Report from Study
  Country: SK (occurrence: SK)
  Receive Date: 20171103
  Receipt Date: 20171103
  Transmission Date: 20180321
  Serious: Yes (Other)
  Sender: FDA-Public Use
  Company Number: SK-ROCHE-2014086

PATIENT

DRUGS (4)
  1. TELAPREVIR [Suspect]
     Active Substance: TELAPREVIR
     Indication: CHRONIC HEPATITIS C
     Route: 065
  2. PEG-INTERFERON ALFA 2A [Suspect]
     Active Substance: PEGINTERFERON ALFA-2A
     Indication: CHRONIC HEPATITIS C
     Route: 065
  3. RIBAVIRIN. [Suspect]
     Active Substance: RIBAVIRIN
     Indication: CHRONIC HEPATITIS C
     Route: 065
  4. BOCEPREVIR [Suspect]
     Active Substance: BOCEPREVIR
     Indication: CHRONIC HEPATITIS C
     Route: 065

REACTIONS (17)
  - Neutropenia [Unknown]
  - Thrombocytopenia [Unknown]
  - Dyspepsia [Unknown]
  - Nausea [Unknown]
  - Decreased appetite [Unknown]
  - Dermatitis [Unknown]
  - Alopecia [Unknown]
  - Hepatic cirrhosis [Unknown]
  - Pruritus [Unknown]
  - Infection [Unknown]
  - Anal pruritus [Unknown]
  - Treatment failure [Unknown]
  - Fatigue [Unknown]
  - Anaemia [Unknown]
  - Weight decreased [Unknown]
  - Insomnia [Unknown]
  - Nervousness [Unknown]
